FAERS Safety Report 9213177 (Version 2)
Quarter: 2013Q2

REPORT INFORMATION
  Report Type: Report from Study
  Country: JP (occurrence: JP)
  Receive Date: 20130405
  Receipt Date: 20130513
  Transmission Date: 20140414
  Serious: Yes (Death, Life-Threatening)
  Sender: FDA-Public Use
  Company Number: JP-JNJFOC-20130402522

PATIENT
  Age: 75 Year
  Sex: Male

DRUGS (9)
  1. FINIBAX [Suspect]
     Indication: PNEUMONIA
     Route: 041
     Dates: start: 20130331, end: 20130331
  2. FINIBAX [Suspect]
     Indication: PNEUMONIA
     Route: 041
     Dates: start: 20130327, end: 20130327
  3. FINIBAX [Suspect]
     Indication: PNEUMONIA
     Route: 041
     Dates: start: 20130328, end: 20130330
  4. MEROPENEM [Concomitant]
     Indication: PNEUMONIA
     Route: 065
     Dates: start: 20130327, end: 20130327
  5. VANCOMYCIN [Concomitant]
     Indication: PNEUMONIA
     Route: 065
     Dates: start: 20130328, end: 20130329
  6. SOL-MELCORT [Concomitant]
     Indication: PNEUMONIA
     Route: 065
     Dates: start: 20130328, end: 20130328
  7. SOL-MELCORT [Concomitant]
     Indication: PNEUMONIA
     Route: 065
     Dates: start: 20130329, end: 20130329
  8. MUCOTRON [Concomitant]
     Route: 048
     Dates: start: 20130327, end: 20130327
  9. HOKUNALIN [Concomitant]
     Route: 065
     Dates: start: 20130327, end: 20130331

REACTIONS (2)
  - Acute myocardial infarction [Fatal]
  - Hyperkalaemia [Not Recovered/Not Resolved]
